FAERS Safety Report 21492194 (Version 2)
Quarter: 2022Q4

REPORT INFORMATION
  Report Type: Report from Study
  Country: US (occurrence: GB)
  Receive Date: 20221021
  Receipt Date: 20221118
  Transmission Date: 20230112
  Serious: Yes (Hospitalization, Other)
  Sender: FDA-Public Use
  Company Number: US-JAZZ-2022-US-033117

PATIENT
  Age: 28 Year
  Sex: Female

DRUGS (1)
  1. EPIDIOLEX [Suspect]
     Active Substance: CANNABIDIOL
     Indication: Seizure
     Dosage: 5 MILLILITER, BID
     Route: 048
     Dates: start: 202207

REACTIONS (1)
  - Seizure [Unknown]

NARRATIVE: CASE EVENT DATE: 20221010
